FAERS Safety Report 25635062 (Version 1)
Quarter: 2025Q3

REPORT INFORMATION
  Report Type: Spontaneous
  Country: CA (occurrence: CA)
  Receive Date: 20250801
  Receipt Date: 20250801
  Transmission Date: 20251021
  Serious: Yes (Death, Life-Threatening, Hospitalization, Disabling, Congenital Anomaly, Other)
  Sender: NOVARTIS
  Company Number: CA-HALEON-2254790

PATIENT
  Age: 40 Year
  Sex: Female
  Weight: 96 kg

DRUGS (352)
  1. COSENTYX [Suspect]
     Active Substance: SECUKINUMAB
     Indication: Rheumatoid arthritis
     Route: 065
  2. COSENTYX [Suspect]
     Active Substance: SECUKINUMAB
     Indication: Psoriatic arthropathy
     Route: 065
  3. COSENTYX [Suspect]
     Active Substance: SECUKINUMAB
     Indication: Product used for unknown indication
     Route: 065
  4. ADALIMUMAB [Suspect]
     Active Substance: ADALIMUMAB
     Indication: Rheumatoid arthritis
     Route: 058
  5. ADALIMUMAB [Suspect]
     Active Substance: ADALIMUMAB
     Route: 040
  6. ADALIMUMAB [Suspect]
     Active Substance: ADALIMUMAB
     Route: 040
  7. ADALIMUMAB [Suspect]
     Active Substance: ADALIMUMAB
     Route: 058
  8. ADALIMUMAB [Suspect]
     Active Substance: ADALIMUMAB
     Route: 058
  9. ADALIMUMAB [Suspect]
     Active Substance: ADALIMUMAB
     Route: 058
  10. ALENDRONATE SODIUM [Suspect]
     Active Substance: ALENDRONATE SODIUM
     Indication: Product used for unknown indication
     Route: 065
  11. ALENDRONATE SODIUM [Suspect]
     Active Substance: ALENDRONATE SODIUM
     Indication: Rheumatoid arthritis
     Route: 048
  12. ALENDRONATE SODIUM [Suspect]
     Active Substance: ALENDRONATE SODIUM
     Route: 048
  13. ALENDRONATE SODIUM [Suspect]
     Active Substance: ALENDRONATE SODIUM
     Route: 016
  14. ALENDRONATE SODIUM [Suspect]
     Active Substance: ALENDRONATE SODIUM
     Route: 065
  15. DICLOFENAC SODIUM [Suspect]
     Active Substance: DICLOFENAC SODIUM
     Indication: Rheumatoid arthritis
     Route: 065
  16. DICLOFENAC SODIUM [Suspect]
     Active Substance: DICLOFENAC SODIUM
     Route: 065
  17. DICLOFENAC SODIUM [Suspect]
     Active Substance: DICLOFENAC SODIUM
     Route: 065
  18. DICLOFENAC SODIUM [Suspect]
     Active Substance: DICLOFENAC SODIUM
     Route: 065
  19. DICLOFENAC SODIUM [Suspect]
     Active Substance: DICLOFENAC SODIUM
     Route: 065
  20. DICLOFENAC SODIUM [Suspect]
     Active Substance: DICLOFENAC SODIUM
     Route: 058
  21. DICLOFENAC SODIUM [Suspect]
     Active Substance: DICLOFENAC SODIUM
     Route: 058
  22. ERENUMAB [Suspect]
     Active Substance: ERENUMAB
     Indication: Migraine
     Route: 065
  23. ERENUMAB [Suspect]
     Active Substance: ERENUMAB
     Indication: Product used for unknown indication
     Route: 065
  24. ERENUMAB [Suspect]
     Active Substance: ERENUMAB
     Route: 065
  25. ERENUMAB [Suspect]
     Active Substance: ERENUMAB
     Route: 065
  26. ERENUMAB [Suspect]
     Active Substance: ERENUMAB
     Route: 065
  27. RITUXIMAB [Suspect]
     Active Substance: RITUXIMAB
     Indication: Rheumatoid arthritis
     Route: 040
  28. CANDESARTAN [Suspect]
     Active Substance: CANDESARTAN
     Indication: Rheumatoid arthritis
     Route: 048
  29. CANDESARTAN [Suspect]
     Active Substance: CANDESARTAN
     Indication: Product used for unknown indication
     Route: 065
  30. CANDESARTAN [Suspect]
     Active Substance: CANDESARTAN
     Indication: Migraine
  31. LEFLUNOMIDE [Suspect]
     Active Substance: LEFLUNOMIDE
     Indication: Rheumatoid arthritis
     Dosage: 10 MG, QD
     Route: 048
  32. LEFLUNOMIDE [Suspect]
     Active Substance: LEFLUNOMIDE
     Indication: Product used for unknown indication
     Dosage: 10 MG, QD
     Route: 065
  33. LEFLUNOMIDE [Suspect]
     Active Substance: LEFLUNOMIDE
     Dosage: 20 MG, QD
     Route: 065
  34. LEFLUNOMIDE [Suspect]
     Active Substance: LEFLUNOMIDE
     Route: 065
  35. LEFLUNOMIDE [Suspect]
     Active Substance: LEFLUNOMIDE
     Route: 065
  36. LEFLUNOMIDE [Suspect]
     Active Substance: LEFLUNOMIDE
     Route: 048
  37. ERELZI [Suspect]
     Active Substance: ETANERCEPT-SZZS
     Indication: Product used for unknown indication
     Route: 058
  38. ERELZI [Suspect]
     Active Substance: ETANERCEPT-SZZS
     Route: 048
  39. ERELZI [Suspect]
     Active Substance: ETANERCEPT-SZZS
     Route: 065
  40. ERELZI [Suspect]
     Active Substance: ETANERCEPT-SZZS
     Route: 058
  41. ERELZI [Suspect]
     Active Substance: ETANERCEPT-SZZS
     Route: 058
  42. ERELZI [Suspect]
     Active Substance: ETANERCEPT-SZZS
     Route: 065
  43. MAGNESIUM CITRATE [Suspect]
     Active Substance: MAGNESIUM CITRATE
     Indication: Product used for unknown indication
     Route: 065
  44. OXYCODONE [Suspect]
     Active Substance: OXYCODONE
     Indication: Product used for unknown indication
     Route: 065
  45. METFORMIN HYDROCHLORIDE [Suspect]
     Active Substance: METFORMIN HYDROCHLORIDE
     Indication: Product used for unknown indication
     Route: 040
  46. METFORMIN HYDROCHLORIDE [Suspect]
     Active Substance: METFORMIN HYDROCHLORIDE
     Route: 065
  47. DICLOFENAC [Suspect]
     Active Substance: DICLOFENAC
     Indication: Rheumatoid arthritis
     Route: 065
  48. DICLOFENAC [Suspect]
     Active Substance: DICLOFENAC
     Indication: Product used for unknown indication
     Route: 058
  49. ACETAMINOPHEN [Suspect]
     Active Substance: ACETAMINOPHEN
     Indication: Rheumatoid arthritis
     Route: 065
  50. ACETAMINOPHEN [Suspect]
     Active Substance: ACETAMINOPHEN
     Indication: Product used for unknown indication
     Route: 065
  51. ACETAMINOPHEN [Suspect]
     Active Substance: ACETAMINOPHEN
     Route: 065
  52. ACETAMINOPHEN [Suspect]
     Active Substance: ACETAMINOPHEN
     Route: 065
  53. ACETAMINOPHEN AND CODEINE [Suspect]
     Active Substance: ACETAMINOPHEN\CODEINE PHOSPHATE
     Indication: Product used for unknown indication
     Route: 065
  54. ACTEMRA [Suspect]
     Active Substance: TOCILIZUMAB
     Indication: Rheumatoid arthritis
     Route: 058
  55. ACTEMRA [Suspect]
     Active Substance: TOCILIZUMAB
     Indication: Product used for unknown indication
     Route: 016
  56. ACTEMRA [Suspect]
     Active Substance: TOCILIZUMAB
     Route: 065
  57. ACTEMRA [Suspect]
     Active Substance: TOCILIZUMAB
     Route: 065
  58. ACTEMRA [Suspect]
     Active Substance: TOCILIZUMAB
     Route: 065
  59. ACTEMRA [Suspect]
     Active Substance: TOCILIZUMAB
     Route: 058
  60. ACTEMRA [Suspect]
     Active Substance: TOCILIZUMAB
     Route: 040
  61. ACTEMRA [Suspect]
     Active Substance: TOCILIZUMAB
     Route: 058
  62. ACTEMRA [Suspect]
     Active Substance: TOCILIZUMAB
     Route: 016
  63. ACTEMRA [Suspect]
     Active Substance: TOCILIZUMAB
     Route: 058
  64. ACTEMRA [Suspect]
     Active Substance: TOCILIZUMAB
     Route: 050
  65. ACTEMRA [Suspect]
     Active Substance: TOCILIZUMAB
     Route: 040
  66. ACTEMRA [Suspect]
     Active Substance: TOCILIZUMAB
     Route: 058
  67. ACTEMRA [Suspect]
     Active Substance: TOCILIZUMAB
     Route: 040
  68. ACTEMRA [Suspect]
     Active Substance: TOCILIZUMAB
     Route: 058
  69. ACTEMRA [Suspect]
     Active Substance: TOCILIZUMAB
     Route: 058
  70. ACTEMRA [Suspect]
     Active Substance: TOCILIZUMAB
     Route: 040
  71. ACTEMRA [Suspect]
     Active Substance: TOCILIZUMAB
     Route: 040
  72. ACTEMRA [Suspect]
     Active Substance: TOCILIZUMAB
     Route: 040
  73. ACTEMRA [Suspect]
     Active Substance: TOCILIZUMAB
     Route: 065
  74. ACTEMRA [Suspect]
     Active Substance: TOCILIZUMAB
     Route: 040
  75. ACTEMRA [Suspect]
     Active Substance: TOCILIZUMAB
     Route: 040
  76. ACTEMRA [Suspect]
     Active Substance: TOCILIZUMAB
     Route: 040
  77. ACTEMRA [Suspect]
     Active Substance: TOCILIZUMAB
     Route: 040
  78. ACTEMRA [Suspect]
     Active Substance: TOCILIZUMAB
     Route: 040
  79. ACTEMRA [Suspect]
     Active Substance: TOCILIZUMAB
     Route: 040
  80. ACTEMRA [Suspect]
     Active Substance: TOCILIZUMAB
     Route: 065
  81. ACTEMRA [Suspect]
     Active Substance: TOCILIZUMAB
     Route: 058
  82. LEFLUNOMIDE [Suspect]
     Active Substance: LEFLUNOMIDE
     Indication: Rheumatoid arthritis
     Dosage: 20 MG, QD
     Route: 065
  83. LEFLUNOMIDE [Suspect]
     Active Substance: LEFLUNOMIDE
     Route: 065
  84. LEFLUNOMIDE [Suspect]
     Active Substance: LEFLUNOMIDE
     Route: 065
  85. LEFLUNOMIDE [Suspect]
     Active Substance: LEFLUNOMIDE
     Route: 065
  86. LEFLUNOMIDE [Suspect]
     Active Substance: LEFLUNOMIDE
     Route: 065
  87. LEFLUNOMIDE [Suspect]
     Active Substance: LEFLUNOMIDE
     Route: 048
  88. LEFLUNOMIDE [Suspect]
     Active Substance: LEFLUNOMIDE
     Route: 048
  89. LEFLUNOMIDE [Suspect]
     Active Substance: LEFLUNOMIDE
     Route: 065
  90. LEFLUNOMIDE [Suspect]
     Active Substance: LEFLUNOMIDE
     Route: 065
  91. LEFLUNOMIDE [Suspect]
     Active Substance: LEFLUNOMIDE
     Route: 048
  92. LEFLUNOMIDE [Suspect]
     Active Substance: LEFLUNOMIDE
     Route: 065
  93. LEFLUNOMIDE [Suspect]
     Active Substance: LEFLUNOMIDE
     Route: 065
  94. APREMILAST [Suspect]
     Active Substance: APREMILAST
     Indication: Rheumatoid arthritis
     Route: 065
  95. ARAVA [Suspect]
     Active Substance: LEFLUNOMIDE
     Indication: Rheumatoid arthritis
     Route: 048
  96. ARAVA [Suspect]
     Active Substance: LEFLUNOMIDE
     Route: 065
  97. ARAVA [Suspect]
     Active Substance: LEFLUNOMIDE
     Dosage: 20 MG, QD
     Route: 048
  98. ARAVA [Suspect]
     Active Substance: LEFLUNOMIDE
     Route: 048
  99. ATOMOXETINE [Suspect]
     Active Substance: ATOMOXETINE
     Indication: Migraine
     Dosage: 2 DOSAGE FORM, QD
     Route: 065
  100. ATOMOXETINE [Suspect]
     Active Substance: ATOMOXETINE
     Route: 065
  101. ATOMOXETINE [Suspect]
     Active Substance: ATOMOXETINE
     Dosage: 2 DOSAGE FORM, QD
     Route: 065
  102. ATOMOXETINE [Suspect]
     Active Substance: ATOMOXETINE
     Dosage: 1 DOSAGE FORM, QD
     Route: 065
  103. ATOMOXETINE [Suspect]
     Active Substance: ATOMOXETINE
     Route: 065
  104. ATOMOXETINE [Suspect]
     Active Substance: ATOMOXETINE
     Dosage: 1 DOSAGE FORM, QD
     Route: 065
  105. BERINERT [Suspect]
     Active Substance: HUMAN C1-ESTERASE INHIBITOR
     Indication: Rheumatoid arthritis
     Route: 065
  106. BERINERT [Suspect]
     Active Substance: HUMAN C1-ESTERASE INHIBITOR
     Indication: Product used for unknown indication
  107. BUTRANS [Suspect]
     Active Substance: BUPRENORPHINE
     Indication: Product used for unknown indication
     Route: 065
  108. BUTRANS [Suspect]
     Active Substance: BUPRENORPHINE
     Route: 065
  109. CETIRIZINE [Suspect]
     Active Substance: CETIRIZINE HYDROCHLORIDE
     Indication: Rheumatoid arthritis
     Route: 065
  110. CETIRIZINE [Suspect]
     Active Substance: CETIRIZINE HYDROCHLORIDE
     Route: 065
  111. CETIRIZINE [Suspect]
     Active Substance: CETIRIZINE HYDROCHLORIDE
     Route: 048
  112. CETIRIZINE [Suspect]
     Active Substance: CETIRIZINE HYDROCHLORIDE
     Route: 065
  113. CETIRIZINE [Suspect]
     Active Substance: CETIRIZINE HYDROCHLORIDE
     Route: 065
  114. CETIRIZINE [Suspect]
     Active Substance: CETIRIZINE HYDROCHLORIDE
     Route: 065
  115. CETIRIZINE [Suspect]
     Active Substance: CETIRIZINE HYDROCHLORIDE
     Route: 048
  116. CETIRIZINE [Suspect]
     Active Substance: CETIRIZINE HYDROCHLORIDE
     Route: 065
  117. CETIRIZINE [Suspect]
     Active Substance: CETIRIZINE HYDROCHLORIDE
     Route: 065
  118. CETIRIZINE [Suspect]
     Active Substance: CETIRIZINE HYDROCHLORIDE
     Route: 065
  119. CHLORHEXIDINE GLUCONATE [Suspect]
     Active Substance: CHLORHEXIDINE GLUCONATE
     Indication: Rheumatoid arthritis
     Route: 065
  120. CHLORHEXIDINE GLUCONATE [Suspect]
     Active Substance: CHLORHEXIDINE GLUCONATE
     Indication: Product used for unknown indication
     Route: 065
  121. CHOLECALCIFEROL [Suspect]
     Active Substance: CHOLECALCIFEROL
     Indication: Product used for unknown indication
     Route: 065
  122. CIMZIA [Suspect]
     Active Substance: CERTOLIZUMAB PEGOL
     Indication: Rheumatoid arthritis
     Route: 058
  123. CORTISONE ACETATE [Suspect]
     Active Substance: CORTISONE ACETATE
     Indication: Rheumatoid arthritis
     Route: 065
  124. DESOXIMETASONE [Suspect]
     Active Substance: DESOXIMETASONE
     Indication: Rheumatoid arthritis
     Route: 058
  125. DESOXIMETASONE [Suspect]
     Active Substance: DESOXIMETASONE
     Route: 065
  126. DESOXIMETASONE [Suspect]
     Active Substance: DESOXIMETASONE
     Route: 058
  127. DESOXIMETASONE [Suspect]
     Active Substance: DESOXIMETASONE
     Route: 058
  128. FLUMETHASONE [Suspect]
     Active Substance: FLUMETHASONE
     Indication: Product used for unknown indication
     Route: 065
  129. FLUMETHASONE PIVALATE [Suspect]
     Active Substance: FLUMETHASONE PIVALATE
     Indication: Product used for unknown indication
     Route: 065
  130. GOLD [Suspect]
     Active Substance: GOLD
     Indication: Product used for unknown indication
     Route: 065
  131. HUMIRA [Suspect]
     Active Substance: ADALIMUMAB
     Indication: Rheumatoid arthritis
     Route: 058
  132. HUMIRA [Suspect]
     Active Substance: ADALIMUMAB
     Indication: Product used for unknown indication
     Route: 058
  133. HUMIRA [Suspect]
     Active Substance: ADALIMUMAB
     Route: 065
  134. HUMIRA [Suspect]
     Active Substance: ADALIMUMAB
     Route: 058
  135. HUMIRA [Suspect]
     Active Substance: ADALIMUMAB
     Route: 058
  136. HUMIRA [Suspect]
     Active Substance: ADALIMUMAB
     Route: 058
  137. HUMIRA [Suspect]
     Active Substance: ADALIMUMAB
     Route: 065
  138. HUMIRA [Suspect]
     Active Substance: ADALIMUMAB
     Route: 065
  139. HYDROCORTISONE [Suspect]
     Active Substance: HYDROCORTISONE
     Indication: Product used for unknown indication
     Route: 065
  140. HYDROCORTISONE [Suspect]
     Active Substance: HYDROCORTISONE
     Route: 065
  141. HYDROXYCHLOROQUINE SULFATE [Suspect]
     Active Substance: HYDROXYCHLOROQUINE SULFATE
     Indication: Rheumatoid arthritis
     Dosage: 400 MG, QD
     Route: 048
  142. HYDROXYCHLOROQUINE SULFATE [Suspect]
     Active Substance: HYDROXYCHLOROQUINE SULFATE
     Route: 016
  143. HYDROXYCHLOROQUINE SULFATE [Suspect]
     Active Substance: HYDROXYCHLOROQUINE SULFATE
     Route: 048
  144. HYDROXYCHLOROQUINE SULFATE [Suspect]
     Active Substance: HYDROXYCHLOROQUINE SULFATE
     Route: 065
  145. HYDROXYCHLOROQUINE SULFATE [Suspect]
     Active Substance: HYDROXYCHLOROQUINE SULFATE
     Route: 048
  146. HYDROXYCHLOROQUINE SULFATE [Suspect]
     Active Substance: HYDROXYCHLOROQUINE SULFATE
     Dosage: 400 MG, QD
     Route: 065
  147. HYDROXYCHLOROQUINE SULFATE [Suspect]
     Active Substance: HYDROXYCHLOROQUINE SULFATE
     Route: 065
  148. HYDROXYCHLOROQUINE SULFATE [Suspect]
     Active Substance: HYDROXYCHLOROQUINE SULFATE
     Dosage: 400 MG, QD
     Route: 065
  149. HYDROXYCHLOROQUINE SULFATE [Suspect]
     Active Substance: HYDROXYCHLOROQUINE SULFATE
     Route: 065
  150. IMURAN [Suspect]
     Active Substance: AZATHIOPRINE
     Indication: Rheumatoid arthritis
     Route: 065
  151. IMURAN [Suspect]
     Active Substance: AZATHIOPRINE
     Route: 065
  152. INFLIXIMAB [Suspect]
     Active Substance: INFLIXIMAB
     Indication: Rheumatoid arthritis
     Route: 040
  153. INFLIXIMAB [Suspect]
     Active Substance: INFLIXIMAB
     Indication: Product used for unknown indication
     Route: 040
  154. INFLIXIMAB [Suspect]
     Active Substance: INFLIXIMAB
     Route: 065
  155. INFLIXIMAB [Suspect]
     Active Substance: INFLIXIMAB
     Route: 065
  156. INFLIXIMAB [Suspect]
     Active Substance: INFLIXIMAB
     Route: 065
  157. INFLIXIMAB [Suspect]
     Active Substance: INFLIXIMAB
     Route: 065
  158. INFLIXIMAB [Suspect]
     Active Substance: INFLIXIMAB
     Route: 040
  159. INFLIXIMAB [Suspect]
     Active Substance: INFLIXIMAB
     Route: 040
  160. INFLIXIMAB [Suspect]
     Active Substance: INFLIXIMAB
     Route: 040
  161. INFLIXIMAB [Suspect]
     Active Substance: INFLIXIMAB
     Route: 040
  162. INFLIXIMAB [Suspect]
     Active Substance: INFLIXIMAB
     Route: 065
  163. ISOPROPYL ALCOHOL [Suspect]
     Active Substance: ISOPROPYL ALCOHOL
     Indication: Product used for unknown indication
     Route: 065
  164. ISOPROPYL ALCOHOL [Suspect]
     Active Substance: ISOPROPYL ALCOHOL
     Route: 065
  165. KEVZARA [Suspect]
     Active Substance: SARILUMAB
     Indication: Product used for unknown indication
     Route: 065
  166. LAMICTAL [Suspect]
     Active Substance: LAMOTRIGINE
     Indication: Product used for unknown indication
     Route: 048
  167. LAMICTAL [Suspect]
     Active Substance: LAMOTRIGINE
     Route: 048
  168. LAMICTAL [Suspect]
     Active Substance: LAMOTRIGINE
     Route: 048
  169. LAMICTAL [Suspect]
     Active Substance: LAMOTRIGINE
     Route: 048
  170. LAMICTAL [Suspect]
     Active Substance: LAMOTRIGINE
     Route: 048
  171. LAMICTAL [Suspect]
     Active Substance: LAMOTRIGINE
     Route: 048
  172. LAMICTAL [Suspect]
     Active Substance: LAMOTRIGINE
     Route: 048
  173. LAMICTAL [Suspect]
     Active Substance: LAMOTRIGINE
     Route: 048
  174. LAMICTAL [Suspect]
     Active Substance: LAMOTRIGINE
     Route: 048
  175. METHOTREXATE [Suspect]
     Active Substance: METHOTREXATE
     Indication: Rheumatoid arthritis
     Dosage: 50 MG, QD (UNK FORMULATION)
     Route: 048
  176. METHOTREXATE [Suspect]
     Active Substance: METHOTREXATE
     Route: 048
  177. METHOTREXATE [Suspect]
     Active Substance: METHOTREXATE
     Route: 013
  178. METHOTREXATE [Suspect]
     Active Substance: METHOTREXATE
     Route: 065
  179. METHOTREXATE [Suspect]
     Active Substance: METHOTREXATE
     Route: 048
  180. METHOTREXATE [Suspect]
     Active Substance: METHOTREXATE
     Route: 065
  181. METHOTREXATE [Suspect]
     Active Substance: METHOTREXATE
     Dosage: 25 MG, QD
     Route: 048
  182. METHOTREXATE [Suspect]
     Active Substance: METHOTREXATE
     Dosage: 15 MG, QW
     Route: 058
  183. METHOTREXATE [Suspect]
     Active Substance: METHOTREXATE
     Dosage: 25 MG, QD
     Route: 058
  184. METHOTREXATE [Suspect]
     Active Substance: METHOTREXATE
     Route: 016
  185. METHOTREXATE [Suspect]
     Active Substance: METHOTREXATE
     Dosage: 25 MG, QW
     Route: 013
  186. METHOTREXATE [Suspect]
     Active Substance: METHOTREXATE
     Dosage: 25 MG, QW
     Route: 065
  187. METHOTREXATE [Suspect]
     Active Substance: METHOTREXATE
     Dosage: 20 MG, QW
     Route: 058
  188. METHOTREXATE [Suspect]
     Active Substance: METHOTREXATE
     Dosage: 25 MG, QD
     Route: 048
  189. METHOTREXATE [Suspect]
     Active Substance: METHOTREXATE
     Route: 048
  190. METHOTREXATE [Suspect]
     Active Substance: METHOTREXATE
     Dosage: 20 MG, QW
     Route: 048
  191. METHYLPREDNISOLONE [Suspect]
     Active Substance: METHYLPREDNISOLONE
     Indication: Product used for unknown indication
     Route: 065
  192. METHYLPREDNISOLONE [Suspect]
     Active Substance: METHYLPREDNISOLONE
     Route: 065
  193. METHYLPREDNISOLONE SODIUM SUCCINATE [Suspect]
     Active Substance: METHYLPREDNISOLONE SODIUM SUCCINATE
     Indication: Product used for unknown indication
     Route: 065
  194. MYOCHRYSINE [Suspect]
     Active Substance: GOLD SODIUM THIOMALATE
     Indication: Rheumatoid arthritis
     Route: 030
  195. MYOCHRYSINE [Suspect]
     Active Substance: GOLD SODIUM THIOMALATE
     Route: 030
  196. NAPROXEN [Suspect]
     Active Substance: NAPROXEN
     Indication: Product used for unknown indication
     Route: 065
  197. NAPROXEN SODIUM [Suspect]
     Active Substance: NAPROXEN SODIUM
     Indication: Rheumatoid arthritis
     Dosage: 500 MG, QD
     Route: 065
  198. NAPROXEN SODIUM [Suspect]
     Active Substance: NAPROXEN SODIUM
     Dosage: 500 MG, QD
     Route: 065
  199. NAPROXEN SODIUM [Suspect]
     Active Substance: NAPROXEN SODIUM
     Route: 065
  200. NICOTINAMIDE [Suspect]
     Active Substance: NIACINAMIDE
     Indication: Product used for unknown indication
     Route: 065
  201. NICOTINAMIDE [Suspect]
     Active Substance: NIACINAMIDE
     Route: 065
  202. PERIOGARD [Suspect]
     Active Substance: CHLORHEXIDINE GLUCONATE
     Indication: Product used for unknown indication
     Route: 065
  203. PREDNISONE [Suspect]
     Active Substance: PREDNISONE
     Indication: Rheumatoid arthritis
     Route: 048
  204. PREDNISONE [Suspect]
     Active Substance: PREDNISONE
     Route: 048
  205. PREDNISONE [Suspect]
     Active Substance: PREDNISONE
     Route: 048
  206. PREDNISONE [Suspect]
     Active Substance: PREDNISONE
     Dosage: 50 MG, QD
     Route: 048
  207. PREDNISONE [Suspect]
     Active Substance: PREDNISONE
     Route: 065
  208. PREDNISONE [Suspect]
     Active Substance: PREDNISONE
     Route: 065
  209. PREDNISONE [Suspect]
     Active Substance: PREDNISONE
     Dosage: 20 MG, QD
     Route: 048
  210. PREDNISONE [Suspect]
     Active Substance: PREDNISONE
     Route: 065
  211. PREDNISONE [Suspect]
     Active Substance: PREDNISONE
     Route: 065
  212. PSEUDOEPHEDRINE [Suspect]
     Active Substance: PSEUDOEPHEDRINE
     Indication: Product used for unknown indication
     Route: 065
  213. PSEUDOEPHEDRINE HYDROCHLORIDE [Suspect]
     Active Substance: PSEUDOEPHEDRINE HYDROCHLORIDE
     Indication: Rheumatoid arthritis
     Route: 065
  214. PSEUDOEPHEDRINE HYDROCHLORIDE [Suspect]
     Active Substance: PSEUDOEPHEDRINE HYDROCHLORIDE
     Route: 065
  215. PSEUDOEPHEDRINE HYDROCHLORIDE [Suspect]
     Active Substance: PSEUDOEPHEDRINE HYDROCHLORIDE
     Route: 065
  216. PSEUDOEPHEDRINE HYDROCHLORIDE [Suspect]
     Active Substance: PSEUDOEPHEDRINE HYDROCHLORIDE
     Route: 065
  217. RANITIDINE [Suspect]
     Active Substance: RANITIDINE
     Indication: Product used for unknown indication
     Route: 065
  218. CETIRIZINE HYDROCHLORIDE\PSEUDOEPHEDRINE HYDROCHLORIDE [Suspect]
     Active Substance: CETIRIZINE HYDROCHLORIDE\PSEUDOEPHEDRINE HYDROCHLORIDE
     Indication: Rheumatoid arthritis
     Route: 065
  219. CETIRIZINE HYDROCHLORIDE\PSEUDOEPHEDRINE HYDROCHLORIDE [Suspect]
     Active Substance: CETIRIZINE HYDROCHLORIDE\PSEUDOEPHEDRINE HYDROCHLORIDE
     Indication: Product used for unknown indication
     Route: 065
  220. CETIRIZINE HYDROCHLORIDE\PSEUDOEPHEDRINE HYDROCHLORIDE [Suspect]
     Active Substance: CETIRIZINE HYDROCHLORIDE\PSEUDOEPHEDRINE HYDROCHLORIDE
     Route: 065
  221. CETIRIZINE HYDROCHLORIDE\PSEUDOEPHEDRINE HYDROCHLORIDE [Suspect]
     Active Substance: CETIRIZINE HYDROCHLORIDE\PSEUDOEPHEDRINE HYDROCHLORIDE
     Route: 065
  222. CETIRIZINE HYDROCHLORIDE\PSEUDOEPHEDRINE HYDROCHLORIDE [Suspect]
     Active Substance: CETIRIZINE HYDROCHLORIDE\PSEUDOEPHEDRINE HYDROCHLORIDE
     Route: 065
  223. CETIRIZINE HYDROCHLORIDE\PSEUDOEPHEDRINE HYDROCHLORIDE [Suspect]
     Active Substance: CETIRIZINE HYDROCHLORIDE\PSEUDOEPHEDRINE HYDROCHLORIDE
     Route: 065
  224. RIBOFLAVIN [Suspect]
     Active Substance: RIBOFLAVIN
     Indication: Product used for unknown indication
     Route: 065
  225. RIBOFLAVIN [Suspect]
     Active Substance: RIBOFLAVIN
     Route: 065
  226. PREDNISONE [Suspect]
     Active Substance: PREDNISONE
     Indication: Rheumatoid arthritis
     Route: 048
  227. PREDNISONE [Suspect]
     Active Substance: PREDNISONE
     Route: 048
  228. PREDNISONE [Suspect]
     Active Substance: PREDNISONE
     Route: 048
  229. PREDNISONE [Suspect]
     Active Substance: PREDNISONE
     Dosage: 20 MG, QD
     Route: 048
  230. PREDNISONE [Suspect]
     Active Substance: PREDNISONE
     Route: 065
  231. PREDNISONE [Suspect]
     Active Substance: PREDNISONE
     Dosage: 5 MG, QD
     Route: 048
  232. PREDNISONE [Suspect]
     Active Substance: PREDNISONE
     Route: 048
  233. PREDNISONE [Suspect]
     Active Substance: PREDNISONE
     Route: 048
  234. PREDNISONE [Suspect]
     Active Substance: PREDNISONE
     Route: 048
  235. PREDNISONE [Suspect]
     Active Substance: PREDNISONE
     Route: 048
  236. PREDNISONE [Suspect]
     Active Substance: PREDNISONE
     Route: 048
  237. PREDNISONE [Suspect]
     Active Substance: PREDNISONE
     Route: 048
  238. PREDNISONE [Suspect]
     Active Substance: PREDNISONE
     Route: 065
  239. PREDNISONE [Suspect]
     Active Substance: PREDNISONE
     Route: 065
  240. PREDNISONE [Suspect]
     Active Substance: PREDNISONE
     Route: 048
  241. PREDNISONE [Suspect]
     Active Substance: PREDNISONE
     Route: 065
  242. BOTULINUM TOXIN TYPE A [Suspect]
     Active Substance: BOTULINUM TOXIN TYPE A
     Indication: Product used for unknown indication
     Route: 065
  243. CALCIUM ASCORBATE [Suspect]
     Active Substance: CALCIUM ASCORBATE
     Indication: Product used for unknown indication
     Route: 065
  244. CALCIUM ASCORBATE [Suspect]
     Active Substance: CALCIUM ASCORBATE
     Route: 065
  245. CALCIUM ASCORBATE [Suspect]
     Active Substance: CALCIUM ASCORBATE
     Route: 065
  246. CALCIUM CITRATE [Suspect]
     Active Substance: CALCIUM CITRATE
     Indication: Product used for unknown indication
     Route: 065
  247. CALCIUM GLUBIONATE [Suspect]
     Active Substance: CALCIUM GLUBIONATE
     Indication: Product used for unknown indication
     Route: 065
  248. CALCIUM GLUBIONATE [Suspect]
     Active Substance: CALCIUM GLUBIONATE
     Route: 016
  249. CALCIUM GLUBIONATE [Suspect]
     Active Substance: CALCIUM GLUBIONATE
     Route: 065
  250. CALCIUM GLUCONATE [Suspect]
     Active Substance: CALCIUM GLUCONATE
     Indication: Product used for unknown indication
     Route: 065
  251. CELECOXIB [Suspect]
     Active Substance: CELECOXIB
     Indication: Product used for unknown indication
     Dosage: 2 DOSAGE FORM, QD
     Route: 065
  252. CELECOXIB [Suspect]
     Active Substance: CELECOXIB
     Dosage: 2 DOSAGE FORM, QD
     Route: 065
  253. CELECOXIB [Suspect]
     Active Substance: CELECOXIB
     Dosage: 1 DOSAGE FORM, QD
     Route: 065
  254. CELECOXIB [Suspect]
     Active Substance: CELECOXIB
     Dosage: 2 DOSAGE FORM, QD
     Route: 048
  255. CELECOXIB [Suspect]
     Active Substance: CELECOXIB
     Dosage: 2 DOSAGE FORM, QD
     Route: 065
  256. CELECOXIB [Suspect]
     Active Substance: CELECOXIB
     Dosage: 2 DOSAGE FORM, QD CAPSULE
     Route: 048
  257. DOMPERIDONE MALEATE [Suspect]
     Active Substance: DOMPERIDONE MALEATE
     Indication: Product used for unknown indication
     Route: 065
  258. DOMPERIDONE MALEATE [Suspect]
     Active Substance: DOMPERIDONE MALEATE
     Route: 065
  259. ENBREL [Suspect]
     Active Substance: ETANERCEPT
     Indication: Rheumatoid arthritis
     Dosage: 50 MG, QW
     Route: 058
  260. ENBREL [Suspect]
     Active Substance: ETANERCEPT
     Route: 058
  261. ENBREL [Suspect]
     Active Substance: ETANERCEPT
     Route: 058
  262. ENBREL [Suspect]
     Active Substance: ETANERCEPT
     Route: 058
  263. ENBREL [Suspect]
     Active Substance: ETANERCEPT
     Route: 065
  264. ENBREL [Suspect]
     Active Substance: ETANERCEPT
     Dosage: 40 MG, QW
     Route: 065
  265. ENBREL [Suspect]
     Active Substance: ETANERCEPT
     Dosage: 10 MG, QW
     Route: 058
  266. ENBREL [Suspect]
     Active Substance: ETANERCEPT
     Route: 058
  267. ENBREL [Suspect]
     Active Substance: ETANERCEPT
     Route: 058
  268. ENBREL [Suspect]
     Active Substance: ETANERCEPT
     Dosage: 50 MG, QW
     Route: 058
  269. ERGOCALCIFEROL [Suspect]
     Active Substance: ERGOCALCIFEROL
     Indication: Product used for unknown indication
     Route: 065
  270. ERGOCALCIFEROL [Suspect]
     Active Substance: ERGOCALCIFEROL
     Route: 065
  271. FOLIC ACID [Suspect]
     Active Substance: FOLIC ACID
     Indication: Rheumatoid arthritis
     Route: 048
  272. FOLIC ACID [Suspect]
     Active Substance: FOLIC ACID
     Route: 048
  273. FOLIC ACID [Suspect]
     Active Substance: FOLIC ACID
     Route: 058
  274. FOLIC ACID [Suspect]
     Active Substance: FOLIC ACID
     Route: 065
  275. FOLIC ACID [Suspect]
     Active Substance: FOLIC ACID
     Route: 048
  276. FOLIC ACID [Suspect]
     Active Substance: FOLIC ACID
     Route: 058
  277. FOLIC ACID [Suspect]
     Active Substance: FOLIC ACID
     Route: 048
  278. FOLIC ACID [Suspect]
     Active Substance: FOLIC ACID
     Route: 065
  279. FOLIC ACID [Suspect]
     Active Substance: FOLIC ACID
     Route: 048
  280. FOLIC ACID [Suspect]
     Active Substance: FOLIC ACID
     Route: 065
  281. FOLIC ACID [Suspect]
     Active Substance: FOLIC ACID
     Route: 065
  282. FOLIC ACID [Suspect]
     Active Substance: FOLIC ACID
     Route: 065
  283. FOLIC ACID [Suspect]
     Active Substance: FOLIC ACID
     Route: 065
  284. FOLIC ACID [Suspect]
     Active Substance: FOLIC ACID
     Route: 058
  285. FOLIC ACID [Suspect]
     Active Substance: FOLIC ACID
     Route: 065
  286. FOLIC ACID [Suspect]
     Active Substance: FOLIC ACID
     Route: 065
  287. FOLIC ACID [Suspect]
     Active Substance: FOLIC ACID
     Route: 048
  288. FOLIC ACID [Suspect]
     Active Substance: FOLIC ACID
     Route: 065
  289. FOSAMAX [Suspect]
     Active Substance: ALENDRONATE SODIUM
     Indication: Rheumatoid arthritis
     Route: 016
  290. FOSAMAX [Suspect]
     Active Substance: ALENDRONATE SODIUM
     Route: 058
  291. FOSAMAX [Suspect]
     Active Substance: ALENDRONATE SODIUM
     Route: 048
  292. HAIR KERATIN AMINO ACIDS GOLD COMPLEX [Suspect]
     Active Substance: HAIR KERATIN AMINO ACIDS GOLD COMPLEX
     Indication: Rheumatoid arthritis
     Route: 065
  293. GOLD SODIUM THIOMALATE [Suspect]
     Active Substance: GOLD SODIUM THIOMALATE
     Indication: Rheumatoid arthritis
     Route: 065
  294. GOLD SODIUM THIOMALATE [Suspect]
     Active Substance: GOLD SODIUM THIOMALATE
     Route: 030
  295. GOLD SODIUM THIOMALATE [Suspect]
     Active Substance: GOLD SODIUM THIOMALATE
     Route: 030
  296. HYDROCORTISONE PROBUTATE [Suspect]
     Active Substance: HYDROCORTISONE PROBUTATE
     Indication: Rheumatoid arthritis
     Route: 065
  297. HYDROCORTISONE PROBUTATE [Suspect]
     Active Substance: HYDROCORTISONE PROBUTATE
     Indication: Product used for unknown indication
     Route: 065
  298. HYDROXYCHLOROQUINE [Suspect]
     Active Substance: HYDROXYCHLOROQUINE
     Indication: Product used for unknown indication
     Dosage: 40 MG, QD
     Route: 065
  299. HYDROXYCHLOROQUINE [Suspect]
     Active Substance: HYDROXYCHLOROQUINE
     Route: 058
  300. HYDROXYCHLOROQUINE [Suspect]
     Active Substance: HYDROXYCHLOROQUINE
     Dosage: 400 MG, QD
     Route: 048
  301. HYDROXYCHLOROQUINE [Suspect]
     Active Substance: HYDROXYCHLOROQUINE
     Route: 065
  302. HYDROXYCHLOROQUINE [Suspect]
     Active Substance: HYDROXYCHLOROQUINE
     Route: 048
  303. HYDROXYCHLOROQUINE [Suspect]
     Active Substance: HYDROXYCHLOROQUINE
     Route: 016
  304. HYDROXYCHLOROQUINE [Suspect]
     Active Substance: HYDROXYCHLOROQUINE
     Route: 048
  305. MINOCYCLINE [Suspect]
     Active Substance: MINOCYCLINE HYDROCHLORIDE
     Indication: Product used for unknown indication
     Route: 065
  306. MINOCYCLINE HYDROCHLORIDE [Suspect]
     Active Substance: MINOCYCLINE HYDROCHLORIDE
     Indication: Product used for unknown indication
     Route: 065
  307. MYRBETRIQ [Suspect]
     Active Substance: MIRABEGRON
     Indication: Product used for unknown indication
     Route: 065
  308. MYRBETRIQ [Suspect]
     Active Substance: MIRABEGRON
     Route: 065
  309. MYRBETRIQ [Suspect]
     Active Substance: MIRABEGRON
     Dosage: 1 DOSAGE FORM, QD
     Route: 065
  310. MYRBETRIQ [Suspect]
     Active Substance: MIRABEGRON
     Dosage: 2 DOSAGE FORM, QD, DOSE FORM: EXTENDED RELEASE TABLETROUTE: UNKNOWN
     Route: 065
  311. NAPROXEN [Suspect]
     Active Substance: NAPROXEN
     Indication: Product used for unknown indication
     Route: 065
  312. NAPROXEN [Suspect]
     Active Substance: NAPROXEN
     Route: 065
  313. NUCALA [Suspect]
     Active Substance: MEPOLIZUMAB
     Indication: Product used for unknown indication
     Route: 065
  314. ORENCIA [Suspect]
     Active Substance: ABATACEPT
     Indication: Rheumatoid arthritis
     Route: 065
  315. ORENCIA [Suspect]
     Active Substance: ABATACEPT
     Dosage: 125 MG, QW
     Route: 058
  316. ORENCIA [Suspect]
     Active Substance: ABATACEPT
     Route: 065
  317. ORENCIA [Suspect]
     Active Substance: ABATACEPT
     Route: 065
  318. ORENCIA [Suspect]
     Active Substance: ABATACEPT
     Route: 065
  319. ORENCIA [Suspect]
     Active Substance: ABATACEPT
     Route: 065
  320. ORENCIA [Suspect]
     Active Substance: ABATACEPT
     Route: 065
  321. ORENCIA [Suspect]
     Active Substance: ABATACEPT
     Route: 058
  322. OXYCODONE TEREPHTHALATE [Suspect]
     Active Substance: OXYCODONE TEREPHTHALATE
     Indication: Product used for unknown indication
     Route: 065
  323. PHENYLEPHRINE HYDROCHLORIDE [Suspect]
     Active Substance: PHENYLEPHRINE HYDROCHLORIDE
     Indication: Product used for unknown indication
     Route: 065
  324. PHENYLEPHRINE HYDROCHLORIDE [Suspect]
     Active Substance: PHENYLEPHRINE HYDROCHLORIDE
     Route: 065
  325. PHTHALYLSULFATHIAZOLE [Suspect]
     Active Substance: PHTHALYLSULFATHIAZOLE
     Indication: Rheumatoid arthritis
     Route: 065
  326. PHTHALYLSULFATHIAZOLE [Suspect]
     Active Substance: PHTHALYLSULFATHIAZOLE
     Indication: Product used for unknown indication
     Route: 065
  327. PHTHALYLSULFATHIAZOLE [Suspect]
     Active Substance: PHTHALYLSULFATHIAZOLE
     Route: 048
  328. PHTHALYLSULFATHIAZOLE [Suspect]
     Active Substance: PHTHALYLSULFATHIAZOLE
     Route: 058
  329. PHTHALYLSULFATHIAZOLE [Suspect]
     Active Substance: PHTHALYLSULFATHIAZOLE
     Dosage: 2000 MG, QD
     Route: 048
  330. PLAQUENIL [Suspect]
     Active Substance: HYDROXYCHLOROQUINE SULFATE
     Indication: Rheumatoid arthritis
     Route: 065
  331. RAMIPRIL [Suspect]
     Active Substance: RAMIPRIL
     Indication: Rheumatoid arthritis
     Route: 065
  332. RAMIPRIL [Suspect]
     Active Substance: RAMIPRIL
     Indication: Product used for unknown indication
     Route: 016
  333. REMICADE [Suspect]
     Active Substance: INFLIXIMAB
     Indication: Product used for unknown indication
     Route: 065
  334. REMICADE [Suspect]
     Active Substance: INFLIXIMAB
     Route: 065
  335. REMICADE [Suspect]
     Active Substance: INFLIXIMAB
     Route: 058
  336. REMICADE [Suspect]
     Active Substance: INFLIXIMAB
     Route: 065
  337. REMICADE [Suspect]
     Active Substance: INFLIXIMAB
     Route: 058
  338. REMICADE [Suspect]
     Active Substance: INFLIXIMAB
     Route: 065
  339. REMICADE [Suspect]
     Active Substance: INFLIXIMAB
     Route: 065
  340. REMICADE [Suspect]
     Active Substance: INFLIXIMAB
     Route: 058
  341. REMICADE [Suspect]
     Active Substance: INFLIXIMAB
     Dosage: 500 MG, QD
     Route: 065
  342. REMICADE [Suspect]
     Active Substance: INFLIXIMAB
     Route: 065
  343. CIMZIA [Suspect]
     Active Substance: CERTOLIZUMAB PEGOL
     Indication: Rheumatoid arthritis
     Route: 058
  344. CIMZIA [Suspect]
     Active Substance: CERTOLIZUMAB PEGOL
     Route: 058
  345. CIMZIA [Suspect]
     Active Substance: CERTOLIZUMAB PEGOL
     Route: 058
  346. CIMZIA [Suspect]
     Active Substance: CERTOLIZUMAB PEGOL
     Route: 058
  347. CORTISONE ACETATE [Suspect]
     Active Substance: CORTISONE ACETATE
     Indication: Rheumatoid arthritis
     Route: 065
  348. CORTISONE ACETATE [Suspect]
     Active Substance: CORTISONE ACETATE
     Route: 065
  349. CORTISONE ACETATE [Suspect]
     Active Substance: CORTISONE ACETATE
     Route: 065
  350. CORTISONE ACETATE [Suspect]
     Active Substance: CORTISONE ACETATE
     Route: 065
  351. DESOXIMETASONE [Suspect]
     Active Substance: DESOXIMETASONE
     Indication: Rheumatoid arthritis
     Route: 065
  352. CELECOXIB [Suspect]
     Active Substance: CELECOXIB
     Indication: Product used for unknown indication
     Dosage: 2 DOSAGE FORM, QD
     Route: 048

REACTIONS (10)
  - Lower respiratory tract infection [Fatal]
  - Live birth [Fatal]
  - Exposure during pregnancy [Fatal]
  - Helicobacter infection [Fatal]
  - Nasopharyngitis [Fatal]
  - Normal newborn [Fatal]
  - Onychomycosis [Fatal]
  - Pneumonia [Fatal]
  - Taste disorder [Fatal]
  - Wound infection [Fatal]
